FAERS Safety Report 17826894 (Version 1)
Quarter: 2020Q2

REPORT INFORMATION
  Report Type: Spontaneous
  Country: CN (occurrence: CN)
  Receive Date: 20200527
  Receipt Date: 20200527
  Transmission Date: 20200714
  Serious: Yes (Hospitalization, Other)
  Sender: FDA-Public Use
  Company Number: CN-QUAGEN-2020QUALIT00049

PATIENT
  Age: 12 Year
  Sex: Female

DRUGS (2)
  1. PROPYLTHIOURACIL. [Suspect]
     Active Substance: PROPYLTHIOURACIL
     Route: 065
  2. PROPYLTHIOURACIL. [Suspect]
     Active Substance: PROPYLTHIOURACIL
     Indication: AUTOIMMUNE THYROID DISORDER
     Route: 065

REACTIONS (5)
  - Acute kidney injury [Recovering/Resolving]
  - Microangiopathic haemolytic anaemia [Recovering/Resolving]
  - Hyperthyroidism [Recovering/Resolving]
  - Atypical haemolytic uraemic syndrome [Recovered/Resolved]
  - Thrombocytopenia [Recovering/Resolving]
